FAERS Safety Report 5023568-3 (Version None)
Quarter: 2006Q2

REPORT INFORMATION
  Report Type: 
  Country: None (occurrence: None)
  Receive Date: 20060612
  Receipt Date: 20060328
  Transmission Date: 20061013
  Serious: Yes (Life-Threatening)
  Sender: FDA-Public Use
  Company Number: DE-ROCHE-441927

PATIENT
  Age: 58 Year
  Sex: Female

DRUGS (2)
  1. MYCOPHENOLATE MOFETIL [Suspect]
     Route: 048
     Dates: start: 20060114, end: 20060419
  2. TACROLIMUS [Suspect]
     Route: 048
     Dates: start: 20060114, end: 20060419

REACTIONS (3)
  - CEREBRAL DISORDER [None]
  - FUNGAL INFECTION [None]
  - MYOCLONIC EPILEPSY [None]
